FAERS Safety Report 11574396 (Version 1)
Quarter: 2015Q3

REPORT INFORMATION
  Report Type: Spontaneous
  Country: US (occurrence: US)
  Receive Date: 20150930
  Receipt Date: 20150930
  Transmission Date: 20151125
  Serious: Yes (Death, Other)
  Sender: FDA-Public Use
  Company Number: US-ACCORD-033839

PATIENT
  Age: 62 Year
  Sex: Male

DRUGS (3)
  1. ADRIAMYCIN [Suspect]
     Active Substance: DOXORUBICIN HYDROCHLORIDE
     Indication: METASTASES TO LIVER
  2. CISPLATIN. [Suspect]
     Active Substance: CISPLATIN
     Indication: METASTASES TO LIVER
  3. MITOMYCIN. [Suspect]
     Active Substance: MITOMYCIN
     Indication: METASTASES TO LIVER

REACTIONS (4)
  - Multi-organ failure [Fatal]
  - Hepatic necrosis [Unknown]
  - Off label use [Unknown]
  - Sepsis [Fatal]
